FAERS Safety Report 9840005 (Version 1)
Quarter: 2014Q1

REPORT INFORMATION
  Report Type: Spontaneous
  Country: US (occurrence: US)
  Receive Date: 20140124
  Receipt Date: 20140124
  Transmission Date: 20141002
  Serious: No
  Sender: FDA-Public Use
  Company Number: US-009507513-1401USA003837

PATIENT
  Age: 38 Year
  Sex: Female
  Weight: 76.19 kg

DRUGS (1)
  1. IMPLANON [Suspect]
     Dosage: UNK
     Route: 059
     Dates: start: 20101220, end: 20131226

REACTIONS (3)
  - Menstruation irregular [Unknown]
  - Coital bleeding [Unknown]
  - Incorrect drug administration duration [Unknown]
